FAERS Safety Report 7504963-7 (Version None)
Quarter: 2011Q2

REPORT INFORMATION
  Report Type: 
  Country: None (occurrence: None)
  Receive Date: 20110526
  Receipt Date: 20110517
  Transmission Date: 20111010
  Serious: No
  Sender: FDA-Public Use
  Company Number: US-BIOGENIDEC-2010BI030854

PATIENT
  Sex: Female

DRUGS (1)
  1. TYSABRI [Suspect]
     Indication: MULTIPLE SCLEROSIS
     Route: 042
     Dates: start: 20090928

REACTIONS (8)
  - IRRITABILITY [None]
  - ASTHENIA [None]
  - MUSCLE SPASMS [None]
  - PARAESTHESIA [None]
  - PAIN [None]
  - DRUG EFFECT DECREASED [None]
  - CONFUSIONAL STATE [None]
  - HEADACHE [None]
